FAERS Safety Report 7117231-2 (Version None)
Quarter: 2010Q4

REPORT INFORMATION
  Report Type: 
  Country: None (occurrence: None)
  Receive Date: 20101122
  Receipt Date: 20101116
  Transmission Date: 20110411
  Serious: Yes (Other)
  Sender: FDA-Public Use
  Company Number: HR-ROXANE LABORATORIES, INC.-2010-RO-01510RO

PATIENT
  Age: 50 Year
  Sex: Female

DRUGS (6)
  1. RISPERIDONE [Suspect]
     Indication: PSYCHIATRIC DECOMPENSATION
     Dosage: 4 MG
     Dates: start: 20090101
  2. RISPERIDONE [Suspect]
     Dosage: 2 MG
  3. LITHIUM CARBONATE [Suspect]
     Indication: BIPOLAR DISORDER
     Dates: start: 20050101, end: 20090101
  4. QUETIAPINE [Suspect]
     Indication: BIPOLAR DISORDER
  5. DEPAKENE [Suspect]
     Indication: BIPOLAR DISORDER
     Dosage: 1000 MG
     Dates: start: 20090101
  6. DEPAKENE [Suspect]
     Dosage: 500 MG

REACTIONS (9)
  - DEPRESSED MOOD [None]
  - GALACTORRHOEA [None]
  - NAUSEA [None]
  - OEDEMA PERIPHERAL [None]
  - OSTEOPOROSIS [None]
  - PSYCHIATRIC DECOMPENSATION [None]
  - PSYCHOMOTOR RETARDATION [None]
  - SEDATION [None]
  - WEIGHT INCREASED [None]
